FAERS Safety Report 5833631-2 (Version None)
Quarter: 2008Q3

REPORT INFORMATION
  Report Type: 
  Country: None (occurrence: None)
  Receive Date: 20080805
  Receipt Date: 20080725
  Transmission Date: 20090109
  Serious: Yes (Disabling)
  Sender: FDA-Public Use
  Company Number: FR-JNJFOC-20080107047

PATIENT
  Age: 53 Year
  Sex: Male

DRUGS (2)
  1. OFLOCET [Suspect]
     Indication: PROSTATITIS
     Route: 048
  2. BREXIN [Concomitant]
     Route: 048

REACTIONS (2)
  - ARTHRALGIA [None]
  - SYNOVITIS [None]
